FAERS Safety Report 5799342-7 (Version None)
Quarter: 2008Q3

REPORT INFORMATION
  Report Type: 
  Country: None (occurrence: None)
  Receive Date: 20080702
  Receipt Date: 20080623
  Transmission Date: 20090109
  Serious: Yes (Hospitalization)
  Sender: FDA-Public Use
  Company Number: FR-PFIZER INC-2008053304

PATIENT
  Sex: Female

DRUGS (4)
  1. SULFASALAZINE [Suspect]
     Indication: MUSCULOSKELETAL PAIN
     Route: 048
     Dates: start: 20070102, end: 20070110
  2. HUMIRA [Suspect]
     Indication: MUSCULOSKELETAL PAIN
     Dosage: TEXT:1 SINGLE DOSE   TDD:1 SINGLE DOSE
     Route: 058
     Dates: start: 20070110, end: 20070110
  3. CORTANCYL [Concomitant]
     Dosage: DAILY DOSE:20MG
     Dates: start: 20060501, end: 20070101
  4. METHOTREXATE [Concomitant]
     Dosage: TEXT:4 TABLETS
     Dates: start: 20061001, end: 20061201

REACTIONS (5)
  - ACUTE PULMONARY OEDEMA [None]
  - DERMATITIS EXFOLIATIVE [None]
  - DRUG RASH WITH EOSINOPHILIA AND SYSTEMIC SYMPTOMS [None]
  - HEPATIC ENZYME INCREASED [None]
  - PYREXIA [None]
